FAERS Safety Report 7001245-7 (Version None)
Quarter: 2010Q3

REPORT INFORMATION
  Report Type: 
  Country: None (occurrence: None)
  Receive Date: 20100920
  Receipt Date: 20080225
  Transmission Date: 20110219
  Serious: No
  Sender: FDA-Public Use
  Company Number: US-ASTRAZENECA-2006UW26457

PATIENT
  Age: 12492 Day
  Sex: Female
  Weight: 76.7 kg

DRUGS (9)
  1. SEROQUEL [Suspect]
     Indication: DEPRESSION
     Dosage: 25MG -200MG
     Route: 048
     Dates: start: 19980227
  2. SEROQUEL [Suspect]
     Route: 048
  3. ZYPREXA [Concomitant]
     Indication: SLEEP DISORDER
     Dates: start: 19970530
  4. PROZAC [Concomitant]
     Dosage: 10MG -20MG
     Dates: start: 19980227
  5. VITAMIN E [Concomitant]
     Dates: start: 19971028
  6. REMERON [Concomitant]
     Dates: start: 19990420
  7. TRILEPTAL [Concomitant]
     Dosage: 150MG, HALF TWICE DAILY
     Dates: start: 20020812
  8. RISPERDAL [Concomitant]
     Dosage: 1-25 MG
     Dates: start: 19970530
  9. TRAZODONE HCL [Concomitant]
     Dates: start: 20041205

REACTIONS (2)
  - DIABETES MELLITUS [None]
  - IMPAIRED FASTING GLUCOSE [None]
